FAERS Safety Report 8314802-2 (Version None)
Quarter: 2012Q2

REPORT INFORMATION
  Report Type: 
  Country: None (occurrence: None)
  Receive Date: 20120426
  Receipt Date: 20120420
  Transmission Date: 20120825
  Serious: Yes (Other)
  Sender: FDA-Public Use
  Company Number: US-PFIZER INC-2012098555

PATIENT
  Age: 35 Year
  Sex: Female

DRUGS (2)
  1. CORTEF [Suspect]
     Indication: PROCEDURAL PAIN
     Dosage: 10 MG, UNK
     Dates: end: 20120201
  2. HYDROCORTISONE ACETATE [Suspect]
     Indication: PROCEDURAL PAIN
     Dosage: UNK
     Dates: start: 20120201

REACTIONS (4)
  - NEOPLASM RECURRENCE [None]
  - WEIGHT INCREASED [None]
  - PAIN [None]
  - HUNGER [None]
